FAERS Safety Report 6905979-1 (Version None)
Quarter: 2010Q3

REPORT INFORMATION
  Report Type: 
  Country: None (occurrence: None)
  Receive Date: 20100802
  Receipt Date: 20100722
  Transmission Date: 20110219
  Serious: Yes (Congenital Anomaly)
  Sender: FDA-Public Use
  Company Number: 2006AL003754

PATIENT

DRUGS (5)
  1. TRAMADOL HYDROCHLORIDE [Suspect]
     Dosage: TRPL
     Route: 064
  2. ACETAMINOPHEN AND CODEINE PHOSPHATE [Concomitant]
  3. IMIPRAMINE [Concomitant]
  4. DIHYDROCODEINE BITARTRATE INJ [Concomitant]
  5. PARACETAMOL [Concomitant]

REACTIONS (2)
  - CONGENITAL MULTIPLEX ARTHROGRYPOSIS [None]
  - MATERNAL DRUGS AFFECTING FOETUS [None]
